FAERS Safety Report 12321336 (Version 1)
Quarter: 2016Q2

REPORT INFORMATION
  Report Type: Spontaneous
  Country: FI (occurrence: FI)
  Receive Date: 20160502
  Receipt Date: 20160502
  Transmission Date: 20160815
  Serious: Yes (Hospitalization)
  Sender: FDA-Public Use
  Company Number: PHHY2016FI055810

PATIENT

DRUGS (1)
  1. ENTRESTO [Suspect]
     Active Substance: SACUBITRIL\VALSARTAN
     Indication: PRODUCT USED FOR UNKNOWN INDICATION
     Dosage: UNK
     Route: 065
     Dates: start: 201604, end: 201604

REACTIONS (4)
  - Blood creatinine increased [Unknown]
  - Pulmonary oedema [Unknown]
  - Ejection fraction decreased [Unknown]
  - Palpitations [Unknown]

NARRATIVE: CASE EVENT DATE: 201604
